FAERS Safety Report 6690386-X (Version None)
Quarter: 2010Q2

REPORT INFORMATION
  Report Type: 
  Country: None (occurrence: None)
  Receive Date: 20100421
  Receipt Date: 20100415
  Transmission Date: 20101027
  Serious: Yes (Hospitalization)
  Sender: FDA-Public Use
  Company Number: US-GILEAD-2010-0028537

PATIENT
  Sex: Male

DRUGS (16)
  1. LETAIRIS [Suspect]
     Indication: PULMONARY ARTERIAL HYPERTENSION
     Route: 048
     Dates: start: 20100218
  2. REVATIO [Concomitant]
  3. DILTIAZEM HCL [Concomitant]
  4. RANEXA [Concomitant]
  5. FUROSEMIDE [Concomitant]
  6. PULMICORT [Concomitant]
  7. FLONASE [Concomitant]
  8. SPIRIVA [Concomitant]
  9. MUCINEX [Concomitant]
  10. BROVANA [Concomitant]
  11. XOPENEX [Concomitant]
  12. PREDNISONE TAB [Concomitant]
  13. LEVAQUIN [Concomitant]
  14. AMOXICILLIN AND CLAVULANATE POTASSIUM [Concomitant]
  15. TASPRIN [Concomitant]
  16. NIASPAN [Concomitant]

REACTIONS (1)
  - HERPES ZOSTER [None]
